FAERS Safety Report 11642999 (Version 2)
Quarter: 2016Q3

REPORT INFORMATION
  Report Type: Report from Study
  Country: US (occurrence: US)
  Receive Date: 20151020
  Receipt Date: 20160803
  Transmission Date: 20161109
  Serious: Yes (Hospitalization, Other)
  Sender: FDA-Public Use
  Company Number: US-ROCHE-1646402

PATIENT
  Age: 53 Year
  Sex: Male
  Weight: 81 kg

DRUGS (13)
  1. DAPSONE. [Concomitant]
     Active Substance: DAPSONE
  2. ASKP1240 [Suspect]
     Active Substance: BLESELUMAB
     Indication: RENAL TRANSPLANT
     Route: 042
     Dates: start: 20131122, end: 20150519
  3. ATIVAN [Concomitant]
     Active Substance: LORAZEPAM
  4. LOVAZA [Concomitant]
     Active Substance: OMEGA-3-ACID ETHYL ESTERS
  5. PRILOSEC [Concomitant]
     Active Substance: OMEPRAZOLE MAGNESIUM
  6. VALGANCICLOVIR HYDROCHLORIDE. [Concomitant]
     Active Substance: VALGANCICLOVIR HYDROCHLORIDE
  7. TOCOPHEROL [Concomitant]
     Active Substance: TOCOPHEROL
  8. EPOETIN ALFA [Concomitant]
     Active Substance: ERYTHROPOIETIN
  9. MYCOPHENOLATE MOFETIL. [Suspect]
     Active Substance: MYCOPHENOLATE MOFETIL
     Indication: RENAL TRANSPLANT
     Route: 048
     Dates: start: 20150514
  10. BASILIXIMAB [Suspect]
     Active Substance: BASILIXIMAB
     Indication: RENAL TRANSPLANT
     Route: 042
     Dates: start: 20131122, end: 20131126
  11. CATAPRES [Concomitant]
     Active Substance: CLONIDINE HYDROCHLORIDE
  12. FISH OIL [Concomitant]
     Active Substance: FISH OIL
  13. OMEGA 3 [Concomitant]
     Active Substance: OMEGA-3 FATTY ACIDS

REACTIONS (5)
  - Mastoiditis [Recovered/Resolved with Sequelae]
  - Blood bicarbonate decreased [Recovering/Resolving]
  - Otitis externa [Recovered/Resolved with Sequelae]
  - Transplant rejection [Not Recovered/Not Resolved]
  - Perichondritis [Recovered/Resolved with Sequelae]

NARRATIVE: CASE EVENT DATE: 20150509
